FAERS Safety Report 11330034 (Version 1)
Quarter: 2015Q3

REPORT INFORMATION
  Report Type: Spontaneous
  Country: US (occurrence: None)
  Receive Date: 20150730
  Receipt Date: 20150730
  Transmission Date: 20151125
  Serious: Yes (Other)
  Sender: FDA-Public Use
  Company Number: None

PATIENT
  Age: 66 Year
  Sex: Female
  Weight: 64.41 kg

DRUGS (9)
  1. DILTIAZEM [Suspect]
     Active Substance: DILTIAZEM
     Indication: CARDIAC DISORDER
     Dates: start: 20150721, end: 20150724
  2. BP MED [Concomitant]
  3. VITAMIN E [Concomitant]
     Active Substance: .ALPHA.-TOCOPHEROL
  4. OCUVITE [Concomitant]
     Active Substance: VITAMINS
  5. MULTIPLE VITAMIN [Concomitant]
     Active Substance: VITAMINS
  6. CALCIUM [Concomitant]
     Active Substance: CALCIUM
  7. VITAMIN D [Concomitant]
     Active Substance: CHOLECALCIFEROL
  8. PROLIX [Concomitant]
  9. FISH OIL [Concomitant]
     Active Substance: FISH OIL

REACTIONS (1)
  - Rash [None]

NARRATIVE: CASE EVENT DATE: 20150723
